FAERS Safety Report 10456320 (Version 7)
Quarter: 2014Q4

REPORT INFORMATION
  Report Type: Report from Study
  Country: JP (occurrence: JP)
  Receive Date: 20140916
  Receipt Date: 20141205
  Transmission Date: 20150528
  Serious: Yes (Hospitalization)
  Sender: FDA-Public Use
  Company Number: JP-OTSUKA-US-2014-12900

PATIENT

DRUGS (2)
  1. BLINDED OPC-14597 [Suspect]
     Active Substance: CILOSTAZOL
     Dosage: 400 MG MILLIGRAM(S), UNK
     Route: 030
     Dates: start: 20130701, end: 20140825
  2. BLINDED OPC-14597 [Suspect]
     Active Substance: CILOSTAZOL
     Indication: BIPOLAR I DISORDER
     Dosage: UNK
     Route: 065
     Dates: start: 20130618

REACTIONS (1)
  - Mania [Recovering/Resolving]

NARRATIVE: CASE EVENT DATE: 20140907
